FAERS Safety Report 6841757-X (Version None)
Quarter: 2010Q3

REPORT INFORMATION
  Report Type: 
  Country: None (occurrence: None)
  Receive Date: 20100714
  Receipt Date: 20070710
  Transmission Date: 20110219
  Serious: No
  Sender: FDA-Public Use
  Company Number: US-PFIZER INC-2007059037

PATIENT
  Sex: Female
  Weight: 81.6 kg

DRUGS (7)
  1. CHANTIX [Suspect]
     Indication: SMOKING CESSATION THERAPY
     Route: 048
     Dates: start: 20070501, end: 20070101
  2. HYDROCHLOROTHIAZIDE [Concomitant]
  3. LOTREL [Concomitant]
     Indication: HYPERTENSION
     Dates: end: 20070101
  4. METFORMIN HCL [Concomitant]
     Route: 048
  5. SPIRIVA [Concomitant]
  6. ADVAIR DISKUS 100/50 [Concomitant]
  7. CRESTOR [Concomitant]

REACTIONS (2)
  - ASTHMA [None]
  - NAUSEA [None]
